FAERS Safety Report 8044994-4 (Version None)
Quarter: 2012Q1

REPORT INFORMATION
  Report Type: 
  Country: None (occurrence: None)
  Receive Date: 20120113
  Receipt Date: 20120106
  Transmission Date: 20120608
  Serious: Yes (Hospitalization, Other)
  Sender: FDA-Public Use
  Company Number: PHHO2011US10459

PATIENT
  Sex: Male
  Weight: 97.052 kg

DRUGS (2)
  1. ZORTRESS [Suspect]
     Indication: LIVER TRANSPLANT
     Dosage: 0.75 MG, BID
     Route: 048
     Dates: start: 20090926, end: 20110531
  2. TACROLIMUS [Suspect]
     Indication: LIVER TRANSPLANT
     Dosage: 1 MG, BID
     Route: 048
     Dates: start: 20090705, end: 20110918

REACTIONS (2)
  - SUTURE RELATED COMPLICATION [None]
  - UMBILICAL HERNIA [None]
